FAERS Safety Report 5903329-0 (Version None)
Quarter: 2008Q3

REPORT INFORMATION
  Report Type: 
  Country: None (occurrence: None)
  Receive Date: 20080926
  Receipt Date: 20080912
  Transmission Date: 20090109
  Serious: Yes (Other)
  Sender: FDA-Public Use
  Company Number: DSU-2008-01485

PATIENT
  Age: 73 Year
  Sex: Female

DRUGS (5)
  1. OLMETEC (OLMESARTAN MEDOXOMIL) (20 MILLIGRAM, TABLET) (OLMESARTAN MEDO [Suspect]
     Indication: HYPERTENSION
     Dosage: 10 MG (20 MG, 1/2 TAB QD), PER ORAL
     Route: 048
     Dates: start: 20080801
  2. BUFFERIN CARDIO (ACETYLSALICYLIC ACID) [Concomitant]
  3. APLANCIL [Concomitant]
  4. IDAFLON [Concomitant]
  5. SINVALIP (SIMVASTATIN) (SIMVASTATIN) [Concomitant]

REACTIONS (8)
  - DRUG DOSE OMISSION [None]
  - FALL [None]
  - FEELING ABNORMAL [None]
  - JOINT INJURY [None]
  - SENSORY DISTURBANCE [None]
  - URINE OUTPUT DECREASED [None]
  - VERTIGO [None]
  - VISUAL IMPAIRMENT [None]
